FAERS Safety Report 9458456 (Version 1)
Quarter: 2013Q3

REPORT INFORMATION
  Report Type: Spontaneous
  Country: GB (occurrence: GB)
  Receive Date: 20130814
  Receipt Date: 20130814
  Transmission Date: 20140515
  Serious: Yes (Disabling, Other)
  Sender: FDA-Public Use
  Company Number: GB-WATSON-2013-14308

PATIENT
  Sex: 0

DRUGS (4)
  1. SERTRALINE HYDROCHLORIDE (UNKNOWN) [Suspect]
     Indication: DEPRESSION
     Dosage: 100 MG, DAILY
     Route: 048
     Dates: end: 20130619
  2. SERTRALINE HYDROCHLORIDE (UNKNOWN) [Suspect]
     Dosage: 50 MG, DAILY
     Route: 048
     Dates: start: 20130117
  3. ZOPICLONE [Concomitant]
     Indication: PRODUCT USED FOR UNKNOWN INDICATION
     Route: 065
  4. TELFAST BD [Concomitant]
     Indication: PRODUCT USED FOR UNKNOWN INDICATION
     Route: 065

REACTIONS (3)
  - Nerve compression [Unknown]
  - Ulnar nerve palsy [Unknown]
  - Pain [Unknown]
